FAERS Safety Report 17271631 (Version 1)
Quarter: 2020Q1

REPORT INFORMATION
  Report Type: Spontaneous
  Country: US (occurrence: US)
  Receive Date: 20191223
  Receipt Date: 20191223
  Transmission Date: 20200409
  Serious: Yes (Life-Threatening, Hospitalization)
  Sender: FDA-Public Use
  Company Number: None

PATIENT
  Age: 75 Year
  Sex: Male

DRUGS (1)
  1. INSULIN (INSULIN, REGULAR, HUMAN 100 UNT/ML INJ) [Suspect]
     Active Substance: INSULIN HUMAN
     Indication: HYPERKALAEMIA
     Dosage: ?          OTHER STRENGTH:100 UNIT/ML;OTHER DOSE:10UNITS;?
     Route: 042
     Dates: start: 20191216, end: 20191216

REACTIONS (6)
  - Condition aggravated [None]
  - Pleural effusion [None]
  - Confusional state [None]
  - White blood cell count increased [None]
  - Hypoglycaemia [None]
  - Anxiety [None]

NARRATIVE: CASE EVENT DATE: 20191216
